FAERS Safety Report 5141581-2 (Version None)
Quarter: 2006Q4

REPORT INFORMATION
  Report Type: 
  Country: None (occurrence: None)
  Receive Date: 20061026
  Receipt Date: 20061016
  Transmission Date: 20070319
  Serious: Yes (Other)
  Sender: FDA-Public Use
  Company Number: GXKR2006US06474

PATIENT
  Age: 5 Year
  Sex: Male

DRUGS (7)
  1. VINCRISTINE [Suspect]
     Indication: NEUROECTODERMAL NEOPLASM
     Dosage: 1.5 MG/M2, 2 CYCLE A MONTH, DAY 0, INTRAVENOUS
     Route: 042
  2. CARBOPLATIN [Suspect]
     Dosage: 500 MG/M2, DAYS 8, 7, 6, INTRAVENOUS
     Route: 042
  3. ETOPOSIDE [Suspect]
     Dosage: 250 MG/M2, DAYS 5, 4, 3,
  4. CYCLOPHOSPHAMIDE [Suspect]
     Dosage: 2100 MG/M2, DAYS 0 AND 1, INTRAVENOUS
     Route: 042
  5. GRANULOCYTE SIMULATING FACTORS (GRANULOCYTE SIMULATING FACTORS) [Suspect]
     Dosage: 5 UG/KG, QD,
  6. RADIATION THERAPY [Suspect]
     Dosage: SEE IMAGE
  7. THIOTEPA [Suspect]
     Dosage: 300 MG/M2, DAYS 5, 4, 3,

REACTIONS (7)
  - FAECAL INCONTINENCE [None]
  - GAIT DISTURBANCE [None]
  - MUSCULAR WEAKNESS [None]
  - MYELITIS TRANSVERSE [None]
  - NERVOUS SYSTEM DISORDER [None]
  - PARAPLEGIA [None]
  - URINARY INCONTINENCE [None]
